FAERS Safety Report 23572046 (Version 3)
Quarter: 2024Q2

REPORT INFORMATION
  Report Type: Spontaneous
  Country: US (occurrence: US)
  Receive Date: 20240227
  Receipt Date: 20240408
  Transmission Date: 20240716
  Serious: No
  Sender: FDA-Public Use
  Company Number: US-SA-SAC20240220000831

PATIENT
  Age: 47 Year
  Sex: Male

DRUGS (2)
  1. DUPIXENT [Suspect]
     Active Substance: DUPILUMAB
     Indication: Sinus polyp
     Dosage: 300 MG, QOW
     Route: 058
     Dates: start: 202401
  2. DUPIXENT [Suspect]
     Active Substance: DUPILUMAB
     Indication: Nasal polyps

REACTIONS (10)
  - Lacrimation increased [Unknown]
  - Photophobia [Unknown]
  - Epistaxis [Not Recovered/Not Resolved]
  - Paranasal sinus hyposecretion [Not Recovered/Not Resolved]
  - Conjunctivitis [Recovered/Resolved]
  - Ocular hyperaemia [Recovered/Resolved]
  - Eye pruritus [Recovered/Resolved]
  - Lymphadenopathy [Unknown]
  - Neck pain [Unknown]
  - Pain [Unknown]

NARRATIVE: CASE EVENT DATE: 20240101
